FAERS Safety Report 19986278 (Version 1)
Quarter: 2021Q4

REPORT INFORMATION
  Report Type: Spontaneous
  Country: US (occurrence: US)
  Receive Date: 20211022
  Receipt Date: 20211022
  Transmission Date: 20220303
  Serious: Yes (Death)
  Sender: FDA-Public Use
  Company Number: US-PROCTER+GAMBLE-PH21009493

PATIENT
  Sex: Female

DRUGS (1)
  1. VICKS NOS [Suspect]
     Active Substance: MENTHOL OR OXYMETAZOLINE HYDROCHLORIDE OR PHENYLEPHRINE HYDROCHLORIDE
     Dosage: UNK
     Route: 048

REACTIONS (1)
  - Death [Fatal]
